FAERS Safety Report 23971540 (Version 1)
Quarter: 2024Q2

REPORT INFORMATION
  Report Type: Spontaneous
  Country: US (occurrence: None)
  Receive Date: 20240612
  Receipt Date: 20240612
  Transmission Date: 20240716
  Serious: Yes (Disabling)
  Sender: FDA-Public Use
  Company Number: None

PATIENT
  Age: 44 Year
  Sex: Female
  Weight: 56.25 kg

DRUGS (2)
  1. GABAPENTIN [Suspect]
     Active Substance: GABAPENTIN
     Indication: Neuralgia
     Dates: start: 20191223, end: 20200517
  2. GABAPENTIN [Suspect]
     Active Substance: GABAPENTIN
     Indication: Neuropathy peripheral

REACTIONS (7)
  - Delusion [None]
  - Drug ineffective [None]
  - Hallucination [None]
  - Formication [None]
  - Disorientation [None]
  - Therapy change [None]
  - Impaired work ability [None]

NARRATIVE: CASE EVENT DATE: 20200401
